FAERS Safety Report 23429187 (Version 2)
Quarter: 2024Q2

REPORT INFORMATION
  Report Type: Report from Study
  Country: US (occurrence: US)
  Receive Date: 20240122
  Receipt Date: 20240531
  Transmission Date: 20240716
  Serious: Yes (Other)
  Sender: FDA-Public Use
  Company Number: US-NOVOPROD-1162692

PATIENT
  Sex: Female

DRUGS (5)
  1. XARELTO [Concomitant]
     Active Substance: RIVAROXABAN
     Indication: Product used for unknown indication
     Dosage: UNK
     Route: 058
  2. OZEMPIC [Suspect]
     Active Substance: SEMAGLUTIDE
     Dosage: 0.5 MG ( DOSE DECREASED)
     Route: 058
  3. OZEMPIC [Suspect]
     Active Substance: SEMAGLUTIDE
     Dosage: 1 MG
     Route: 058
  4. OZEMPIC [Suspect]
     Active Substance: SEMAGLUTIDE
     Indication: Diabetes mellitus
     Dosage: UNK
     Route: 058
     Dates: start: 202305
  5. OZEMPIC [Suspect]
     Active Substance: SEMAGLUTIDE
     Indication: Weight control
     Dosage: 0.5 UNK
     Route: 058

REACTIONS (9)
  - Rotator cuff syndrome [Unknown]
  - Condition aggravated [Unknown]
  - Tendon rupture [Unknown]
  - Condition aggravated [Unknown]
  - Knee operation [Unknown]
  - Heart rate increased [Not Recovered/Not Resolved]
  - Hypersensitivity [Unknown]
  - Illness [Unknown]
  - Blood pressure abnormal [Not Recovered/Not Resolved]
